FAERS Safety Report 9514113 (Version 1)
Quarter: 2013Q3

REPORT INFORMATION
  Report Type: Spontaneous
  Country: US (occurrence: US)
  Receive Date: 20130910
  Receipt Date: 20130910
  Transmission Date: 20140515
  Serious: Yes (Hospitalization)
  Sender: FDA-Public Use
  Company Number: US-B.I. PHARMACEUTICALS,INC./RIDGEFIELD-2013-BI-27696BP

PATIENT
  Age: 44 Year
  Sex: Female
  Weight: 144 kg

DRUGS (11)
  1. MICARDIS HCT [Suspect]
     Indication: HYPERTENSION
     Dosage: STRENGTH: 80 MG / 25 MG; DAILY DOSE: 80MG/25 MG
     Route: 048
     Dates: start: 201301, end: 20130816
  2. STOOL SOFTNER [Concomitant]
     Indication: FAECES HARD
     Dosage: 100 MG
     Route: 048
  3. TYLENOL [Concomitant]
     Indication: BACK PAIN
     Dosage: 2000 MG
     Route: 048
  4. GEMFIBDROZIL [Concomitant]
     Indication: BLOOD CHOLESTEROL INCREASED
     Dosage: 1200 MG
     Route: 048
  5. TRAZODONE [Concomitant]
     Indication: SLEEP DISORDER
     Dosage: 150 MG
     Route: 048
  6. PRAVASTATIN SODIUM [Concomitant]
     Indication: BLOOD CHOLESTEROL INCREASED
     Dosage: 40 MG
     Route: 048
  7. GUANFACINE [Concomitant]
     Indication: HYPERTENSION
     Dosage: 1 MG
     Route: 048
  8. GUANFACINE [Concomitant]
     Indication: POST-TRAUMATIC STRESS DISORDER
  9. OMEPRAZOLE [Concomitant]
     Indication: DYSPEPSIA
     Dosage: 20 MG
     Route: 048
  10. PAXIL [Concomitant]
     Indication: DEPRESSION
     Dosage: 20 MG
     Route: 048
  11. ASPIRIN [Concomitant]
     Indication: BLOOD DISORDER
     Dosage: 325 MG
     Route: 048

REACTIONS (1)
  - Cerebrovascular accident [Recovered/Resolved]
